FAERS Safety Report 23639622 (Version 2)
Quarter: 2024Q1

REPORT INFORMATION
  Report Type: Spontaneous
  Country: IE (occurrence: IE)
  Receive Date: 20240316
  Receipt Date: 20240326
  Transmission Date: 20240409
  Serious: Yes (Other)
  Sender: FDA-Public Use
  Company Number: IE-TEVA-VS-3170323

PATIENT
  Age: 15 Year
  Sex: Female

DRUGS (1)
  1. LANSOPRAZOLE [Suspect]
     Active Substance: LANSOPRAZOLE
     Indication: Gastrooesophageal reflux disease
     Dosage: UNK
     Route: 065

REACTIONS (5)
  - Lower respiratory tract infection [Unknown]
  - Throat tightness [Recovering/Resolving]
  - Hypersensitivity [Unknown]
  - Product use complaint [Unknown]
  - Drug ineffective [Unknown]
